FAERS Safety Report 5748864-3 (Version None)
Quarter: 2008Q2

REPORT INFORMATION
  Report Type: 
  Country: None (occurrence: None)
  Receive Date: 20080522
  Receipt Date: 20080508
  Transmission Date: 20081010
  Serious: Yes (Hospitalization, Other)
  Sender: FDA-Public Use
  Company Number: 2007US002893

PATIENT
  Age: 8 Year
  Sex: Female
  Weight: 17.9 kg

DRUGS (29)
  1. PROGRAF [Suspect]
     Indication: RENAL TRANSPLANT
     Dates: start: 20051203
  2. ZENAPAX [Suspect]
     Indication: RENAL TRANSPLANT
     Dosage: SEE IMAGE
     Route: 042
     Dates: start: 20051216, end: 20051216
  3. ZENAPAX [Suspect]
     Indication: RENAL TRANSPLANT
     Dosage: SEE IMAGE
     Route: 042
     Dates: start: 20060102, end: 20060102
  4. ZENAPAX [Suspect]
     Indication: RENAL TRANSPLANT
     Dosage: SEE IMAGE
     Route: 042
     Dates: start: 20060117, end: 20060117
  5. ZENAPAX [Suspect]
     Indication: RENAL TRANSPLANT
     Dosage: SEE IMAGE
     Route: 042
     Dates: start: 20060130, end: 20060130
  6. ZENAPAX [Suspect]
     Indication: RENAL TRANSPLANT
     Dosage: SEE IMAGE
     Route: 042
     Dates: start: 20060221, end: 20060221
  7. ZENAPAX [Suspect]
     Indication: RENAL TRANSPLANT
     Dosage: SEE IMAGE
     Route: 042
     Dates: start: 20060320, end: 20060320
  8. ZENAPAX [Suspect]
     Indication: RENAL TRANSPLANT
     Dosage: SEE IMAGE
     Route: 042
     Dates: start: 20060417, end: 20060417
  9. ZENAPAX [Suspect]
     Indication: RENAL TRANSPLANT
     Dosage: SEE IMAGE
     Route: 042
     Dates: start: 20051203, end: 20060515
  10. ZENAPAX [Suspect]
     Indication: RENAL TRANSPLANT
     Dosage: SEE IMAGE
     Route: 042
     Dates: start: 20060515, end: 20060515
  11. ASPIRIN [Concomitant]
  12. REGLAN [Concomitant]
  13. PREVACID [Concomitant]
  14. MULTIVITAMIN [Concomitant]
  15. IRON (IRON) [Concomitant]
  16. MAGNESIUM OXIDE (MAGNESIUM OXIDE) [Concomitant]
  17. NEUPOGEN [Concomitant]
  18. FLONASE [Concomitant]
  19. ISRADIPINE [Concomitant]
  20. COLACE (DOCUSATE SODIUM) [Concomitant]
  21. CEFUROXIME [Concomitant]
  22. CYCLOSPORINE [Concomitant]
  23. VALCYTE [Concomitant]
  24. MIRALAX [Concomitant]
  25. SINGULAIR [Concomitant]
  26. BECLOMETHASONE DIPROPIONATE [Concomitant]
  27. INSULIN HUMULIN (INSULIN HUMAN, INSULIN HUMAN INJECTION, ISOPHANE) [Concomitant]
  28. RAPAMUNE [Concomitant]
  29. EPOGEN [Concomitant]

REACTIONS (5)
  - ATELECTASIS [None]
  - BRONCHIAL WALL THICKENING [None]
  - CENTRAL LINE INFECTION [None]
  - LUNG ABSCESS [None]
  - PLEURAL EFFUSION [None]
